FAERS Safety Report 8293033-9 (Version None)
Quarter: 2012Q2

REPORT INFORMATION
  Report Type: 
  Country: None (occurrence: None)
  Receive Date: 20120417
  Receipt Date: 20111108
  Transmission Date: 20120825
  Serious: No
  Sender: FDA-Public Use
  Company Number: US-ASTRAZENECA-2011SE59532

PATIENT
  Age: 59 Year
  Sex: Female
  Weight: 99.8 kg

DRUGS (11)
  1. NEXIUM [Suspect]
     Indication: HIATUS HERNIA
     Route: 048
  2. ATENOLOL [Concomitant]
     Indication: BLOOD PRESSURE
     Route: 048
  3. SEROQUEL [Suspect]
     Indication: INSOMNIA
     Route: 048
     Dates: start: 20110701
  4. CITALOPRAM [Concomitant]
     Route: 048
  5. OMEPRAZOLE [Concomitant]
     Indication: GASTRIC PH DECREASED
     Route: 048
  6. SEROQUEL [Suspect]
     Route: 048
  7. SEROQUEL [Suspect]
     Route: 048
  8. CITALOPRAM [Concomitant]
     Indication: DEPRESSION
  9. CELEXA [Concomitant]
     Indication: DEPRESSION
  10. FIRONOHTE [Concomitant]
  11. FIPIRONO HCTZ [Concomitant]
     Indication: POLYURIA
     Route: 048

REACTIONS (5)
  - DRUG INEFFECTIVE [None]
  - INCORRECT DOSE ADMINISTERED [None]
  - HALLUCINATION, AUDITORY [None]
  - HALLUCINATION, VISUAL [None]
  - OFF LABEL USE [None]
